FAERS Safety Report 8887164 (Version 1)
Quarter: 2012Q4

REPORT INFORMATION
  Report Type: 
  Country: US (occurrence: US)
  Receive Date: 20121105
  Receipt Date: 20121105
  Transmission Date: 20130627
  Serious: Yes (Other)
  Sender: FDA-Public Use
  Company Number: US-PFIZER INC-2012274037

PATIENT
  Age: 39 Year
  Sex: Female

DRUGS (2)
  1. SOLU-MEDROL [Suspect]
     Dosage: UNK
     Route: 048
  2. COPAXONE [Suspect]
     Indication: MS
     Dosage: 20 mg
     Dates: start: 20100805

REACTIONS (2)
  - Multiple sclerosis relapse [Unknown]
  - Incorrect route of drug administration [Unknown]
